FAERS Safety Report 12536228 (Version 10)
Quarter: 2016Q4

REPORT INFORMATION
  Report Type: Report from Study
  Country: US (occurrence: US)
  Receive Date: 20160707
  Receipt Date: 20161026
  Transmission Date: 20170207
  Serious: Yes (Hospitalization, Congenital Anomaly, Other)
  Sender: FDA-Public Use
  Company Number: US-GLAXOSMITHKLINE-US2016GSK095955

PATIENT
  Age: 0 Year
  Sex: Female
  Weight: 2.27 kg

DRUGS (14)
  1. POTASSIUM CHLORIDE. [Concomitant]
     Active Substance: POTASSIUM CHLORIDE
     Dosage: UNK
     Dates: start: 20160126
  2. APRESOLINE HYDROCHLORIDE [Concomitant]
     Active Substance: HYDRALAZINE HYDROCHLORIDE
  3. COREG [Concomitant]
     Active Substance: CARVEDILOL
  4. PLAQUENIL [Concomitant]
     Active Substance: HYDROXYCHLOROQUINE SULFATE
  5. BELIMUMAB [Suspect]
     Active Substance: BELIMUMAB
     Indication: SYSTEMIC LUPUS ERYTHEMATOSUS
     Dosage: UNK UNK, U
     Route: 064
     Dates: start: 2013, end: 20150818
  6. ASPIRIN. [Concomitant]
     Active Substance: ASPIRIN
     Dosage: UNK
     Dates: end: 201509
  7. LASIX [Concomitant]
     Active Substance: FUROSEMIDE
     Dosage: 60 MG, QD
     Dates: start: 20160107, end: 201603
  8. ANCEF [Concomitant]
     Active Substance: CEFAZOLIN SODIUM
  9. FOLATE [Concomitant]
     Active Substance: FOLATE SODIUM
  10. PROCARDIA [Concomitant]
     Active Substance: NIFEDIPINE
  11. ISORDIL [Concomitant]
     Active Substance: ISOSORBIDE DINITRATE
  12. LASIX [Concomitant]
     Active Substance: FUROSEMIDE
     Dosage: 20 MG, QD
     Dates: start: 20151231, end: 20160107
  13. MACRODANTIN [Concomitant]
     Active Substance: NITROFURANTOIN
     Indication: URINARY TRACT INFECTION
  14. BETAMETHASONE. [Concomitant]
     Active Substance: BETAMETHASONE
     Dosage: UNK
     Dates: start: 20160217

REACTIONS (6)
  - Patent ductus arteriosus [Recovered/Resolved]
  - Tricuspid valve incompetence [Unknown]
  - Atrial septal defect [Recovered/Resolved]
  - Premature baby [Recovered/Resolved]
  - Cardiac murmur [Unknown]
  - Foetal exposure during pregnancy [Unknown]

NARRATIVE: CASE EVENT DATE: 20160210
